FAERS Safety Report 4308390-5 (Version None)
Quarter: 2004Q1

REPORT INFORMATION
  Report Type: 
  Country: None (occurrence: None)
  Receive Date: 20040225
  Receipt Date: 20030102
  Transmission Date: 20041129
  Serious: Yes (Disabling)
  Sender: FDA-Public Use
  Company Number: WAES 0211USA00063

PATIENT
  Age: 62 Year
  Sex: Male
  Weight: 100.6985 kg

DRUGS (5)
  1. ZOCOR [Suspect]
     Indication: HYPERLIPIDAEMIA
     Dosage: 5 MG/ HS/ PO
     Route: 048
     Dates: start: 19990902, end: 20021001
  2. ALCOHOL [Concomitant]
  3. ATENOLOL [Concomitant]
  4. HYDROCHLOROTHIAZIDE [Concomitant]
  5. IBUPROFEN [Concomitant]

REACTIONS (2)
  - ASTHENIA [None]
  - MYALGIA [None]
